FAERS Safety Report 6770670-1 (Version None)
Quarter: 2010Q2

REPORT INFORMATION
  Report Type: 
  Country: None (occurrence: None)
  Receive Date: 20100615
  Receipt Date: 20100607
  Transmission Date: 20101027
  Serious: Yes (Other)
  Sender: FDA-Public Use
  Company Number: US-AMGEN-QUU416785

PATIENT
  Sex: Female

DRUGS (5)
  1. ENBREL [Suspect]
     Indication: RHEUMATOID ARTHRITIS
     Route: 058
  2. LYRICA [Concomitant]
  3. VICODIN [Concomitant]
  4. RELAFEN [Concomitant]
  5. METHOTREXATE [Concomitant]

REACTIONS (5)
  - DRUG INEFFECTIVE [None]
  - FIBROMYALGIA [None]
  - JOINT CREPITATION [None]
  - NAUSEA [None]
  - VOMITING [None]
